FAERS Safety Report 8192428-1 (Version None)
Quarter: 2012Q1

REPORT INFORMATION
  Report Type: 
  Country: None (occurrence: None)
  Receive Date: 20120308
  Receipt Date: 20120229
  Transmission Date: 20120608
  Serious: Yes (Other)
  Sender: FDA-Public Use
  Company Number: US-BIOGENIDEC-2012BI007741

PATIENT
  Age: 53 Year
  Sex: Female

DRUGS (1)
  1. AVONEX [Suspect]
     Indication: MULTIPLE SCLEROSIS
     Route: 030
     Dates: end: 20120101

REACTIONS (8)
  - FALL [None]
  - STRESS [None]
  - VISION BLURRED [None]
  - ROAD TRAFFIC ACCIDENT [None]
  - INTERVERTEBRAL DISC PROTRUSION [None]
  - FEMUR FRACTURE [None]
  - MEMORY IMPAIRMENT [None]
  - DIARRHOEA [None]
